FAERS Safety Report 14336520 (Version 2)
Quarter: 2018Q1

REPORT INFORMATION
  Report Type: Spontaneous
  Country: US (occurrence: US)
  Receive Date: 20171229
  Receipt Date: 20180103
  Transmission Date: 20180509
  Serious: Yes (Death)
  Sender: FDA-Public Use
  Company Number: US-PFIZER INC-2017552460

PATIENT
  Age: 56 Year
  Sex: Male

DRUGS (28)
  1. CEFEPIME HCL [Suspect]
     Active Substance: CEFEPIME HYDROCHLORIDE
     Indication: SCOPULARIOPSIS INFECTION
  2. TERBINAFINE. [Suspect]
     Active Substance: TERBINAFINE
     Indication: ANTIFUNGAL TREATMENT
     Dosage: UNK
  3. VANCOMYCIN HCL [Suspect]
     Active Substance: VANCOMYCIN HYDROCHLORIDE
     Indication: PROPHYLAXIS
     Dosage: UNK
  4. VANCOMYCIN HCL [Suspect]
     Active Substance: VANCOMYCIN HYDROCHLORIDE
     Indication: SCOPULARIOPSIS INFECTION
  5. TERBINAFINE. [Suspect]
     Active Substance: TERBINAFINE
     Indication: SCOPULARIOPSIS INFECTION
  6. AMPHOTERICIN [Suspect]
     Active Substance: AMPHOTERICIN B
     Indication: SCOPULARIOPSIS INFECTION
  7. METHYLPREDNISOLONE. [Concomitant]
     Active Substance: METHYLPREDNISOLONE
     Indication: PROPHYLAXIS AGAINST TRANSPLANT REJECTION
  8. AMPHOTERICIN [Suspect]
     Active Substance: AMPHOTERICIN B
     Indication: ANTIFUNGAL TREATMENT
     Dosage: UNK (LIPID COMPLEX)
  9. GANCICLOVIR. [Suspect]
     Active Substance: GANCICLOVIR
     Indication: SCOPULARIOPSIS INFECTION
  10. TRIMETHOPRIM SULFAMETHOXAZOLE [Suspect]
     Active Substance: SULFAMETHOXAZOLE\TRIMETHOPRIM
     Indication: PROPHYLAXIS
     Dosage: UNK
  11. MICAFUNGIN [Suspect]
     Active Substance: MICAFUNGIN
     Indication: SCOPULARIOPSIS INFECTION
  12. ITRACONAZOLE. [Suspect]
     Active Substance: ITRACONAZOLE
     Indication: SCOPULARIOPSIS INFECTION
  13. POSACONAZOLE [Suspect]
     Active Substance: POSACONAZOLE
     Indication: ANTIFUNGAL TREATMENT
     Dosage: UNK
  14. POSACONAZOLE [Suspect]
     Active Substance: POSACONAZOLE
     Indication: SCOPULARIOPSIS INFECTION
  15. MICAFUNGIN [Suspect]
     Active Substance: MICAFUNGIN
     Indication: ANTIFUNGAL TREATMENT
     Dosage: UNK
  16. VORICONAZOLE. [Suspect]
     Active Substance: VORICONAZOLE
     Indication: ANTIFUNGAL TREATMENT
     Dosage: UNK
  17. VORICONAZOLE. [Suspect]
     Active Substance: VORICONAZOLE
     Indication: SCOPULARIOPSIS INFECTION
  18. CEFEPIME HCL [Suspect]
     Active Substance: CEFEPIME HYDROCHLORIDE
     Indication: PROPHYLAXIS
     Dosage: UNK
  19. PREDNISONE. [Concomitant]
     Active Substance: PREDNISONE
     Indication: IDIOPATHIC PULMONARY FIBROSIS
     Dosage: 10 MG, UNK
  20. BASILIXIMAB [Concomitant]
     Active Substance: BASILIXIMAB
     Indication: IMMUNOSUPPRESSANT DRUG THERAPY
     Dosage: UNK
  21. MYCOPHENOLATE MOFETIL. [Concomitant]
     Active Substance: MYCOPHENOLATE MOFETIL
     Indication: IMMUNOSUPPRESSANT DRUG THERAPY
     Dosage: UNK
  22. METHYLPREDNISOLONE. [Concomitant]
     Active Substance: METHYLPREDNISOLONE
     Indication: IMMUNOSUPPRESSANT DRUG THERAPY
     Dosage: UNK
  23. PIPERACILLIN/TAZOBACTAM [Suspect]
     Active Substance: PIPERACILLIN SODIUM\TAZOBACTAM SODIUM
     Indication: SCOPULARIOPSIS INFECTION
     Dosage: UNK
  24. ITRACONAZOLE. [Suspect]
     Active Substance: ITRACONAZOLE
     Indication: PROPHYLAXIS
     Dosage: UNK
  25. TRIMETHOPRIM SULFAMETHOXAZOLE [Suspect]
     Active Substance: SULFAMETHOXAZOLE\TRIMETHOPRIM
     Indication: SCOPULARIOPSIS INFECTION
  26. DAKIN STABILISE COPPER [Concomitant]
     Dosage: UNK
  27. GANCICLOVIR. [Suspect]
     Active Substance: GANCICLOVIR
     Indication: PROPHYLAXIS
     Dosage: UNK
  28. TACROLIMUS. [Concomitant]
     Active Substance: TACROLIMUS
     Indication: IMMUNOSUPPRESSANT DRUG THERAPY
     Dosage: UNK

REACTIONS (1)
  - Drug ineffective [Fatal]
